FAERS Safety Report 25806458 (Version 2)
Quarter: 2025Q3

REPORT INFORMATION
  Report Type: Spontaneous
  Country: EU (occurrence: EU)
  Receive Date: 20250916
  Receipt Date: 20250927
  Transmission Date: 20251021
  Serious: Yes (Hospitalization)
  Sender: NOVARTIS
  Company Number: None

PATIENT
  Age: 4 Year
  Sex: Male
  Weight: 23.8 kg

DRUGS (2)
  1. TEGRETOL [Suspect]
     Active Substance: CARBAMAZEPINE
     Indication: Epilepsy
     Dosage: 24 ML, Q24H (12 ML DUE VOLTE AL GIORNO)
     Route: 048
     Dates: start: 20250706, end: 20250825
  2. VALPROATE SODIUM [Concomitant]
     Active Substance: VALPROATE SODIUM
     Indication: Epilepsy
     Route: 065

REACTIONS (5)
  - Skin exfoliation [Recovering/Resolving]
  - Pyrexia [Recovering/Resolving]
  - Periorbital oedema [Recovering/Resolving]
  - Oedema genital [Recovering/Resolving]
  - Oedema peripheral [Recovering/Resolving]

NARRATIVE: CASE EVENT DATE: 20250811
